FAERS Safety Report 20118307 (Version 1)
Quarter: 2021Q4

REPORT INFORMATION
  Report Type: Spontaneous
  Country: US (occurrence: US)
  Receive Date: 20211126
  Receipt Date: 20211126
  Transmission Date: 20220303
  Serious: No
  Sender: FDA-Public Use
  Company Number: US-PURDUE-USA-2020-0217872

PATIENT
  Sex: Female

DRUGS (12)
  1. MS CONTIN [Suspect]
     Active Substance: MORPHINE SULFATE
     Indication: Arthralgia
     Dosage: 60 MG, DAILY
     Route: 048
     Dates: start: 20160201
  2. MORPHINE SULFATE [Suspect]
     Active Substance: MORPHINE SULFATE
     Indication: Arthralgia
     Dosage: 60 MG, BID
     Route: 048
  3. BUPRENORPHINE [Suspect]
     Active Substance: BUPRENORPHINE
     Indication: Arthralgia
     Dosage: UNK
     Route: 062
  4. TRAMADOL [Suspect]
     Active Substance: TRAMADOL
     Indication: Arthralgia
     Dosage: UNKNOWN
     Route: 048
  5. FENTANYL [Suspect]
     Active Substance: FENTANYL
     Indication: Arthralgia
     Dosage: 25 MG, UNK
     Route: 062
  6. FENTANYL [Suspect]
     Active Substance: FENTANYL
     Dosage: 50 MG, 1 CANE
     Route: 062
  7. FENTANYL [Suspect]
     Active Substance: FENTANYL
     Dosage: 75 MG, 2 CANES
     Route: 062
  8. FENTANYL [Suspect]
     Active Substance: FENTANYL
     Dosage: 100 MG, UNK
     Route: 062
  9. VICODIN [Suspect]
     Active Substance: ACETAMINOPHEN\HYDROCODONE BITARTRATE
     Indication: Arthralgia
     Dosage: 750 MG, 1 OR 2 A DAY
     Route: 048
  10. VICODIN [Suspect]
     Active Substance: ACETAMINOPHEN\HYDROCODONE BITARTRATE
     Dosage: 10 MG, 1 OR 2 A DAY
     Route: 048
  11. NORCO [Suspect]
     Active Substance: ACETAMINOPHEN\HYDROCODONE BITARTRATE
     Indication: Arthralgia
     Dosage: 7.5 MG, TID AS NEEDED
     Route: 065
     Dates: end: 20191225
  12. COLCHICINE [Suspect]
     Active Substance: COLCHICINE
     Indication: Product used for unknown indication
     Dosage: 0.6 MG, PRN
     Route: 065

REACTIONS (4)
  - Restless legs syndrome [Unknown]
  - Formication [Unknown]
  - Sleep deficit [Unknown]
  - Drug withdrawal syndrome [Unknown]
